FAERS Safety Report 4402138-1 (Version None)
Quarter: 2004Q3

REPORT INFORMATION
  Report Type: 
  Country: None (occurrence: None)
  Receive Date: 20040715
  Receipt Date: 20040702
  Transmission Date: 20050211
  Serious: Yes (Hospitalization, Other)
  Sender: FDA-Public Use
  Company Number: 2004-BP-04267RA

PATIENT
  Age: 29 Year
  Sex: Female

DRUGS (3)
  1. VIRAMUNE [Suspect]
     Indication: HIV INFECTION
     Dosage: 200 MG (SEE TEXT, 200MG/D (STRENGTH: 200 MG/D) PO
     Route: 048
     Dates: start: 20040101
  2. ZIDOVUDINE  (ZIDOUVDINE) [Suspect]
     Indication: HIV INFECTION
     Dosage: 300 MG (SEE TEXT, 399MG/D (STRENGH: 300MG/D)
     Dates: start: 20040101
  3. LAMIVUDINE (LAMIVUDINE) [Suspect]
     Indication: HIV INFECTION
     Dosage: 150 MG (SEE TEXT, 150 MG/D (STRENGH: 150 MG/D)
     Dates: start: 20040101

REACTIONS (2)
  - DRUG EXPOSURE DURING PREGNANCY [None]
  - STILLBIRTH [None]
